FAERS Safety Report 11426334 (Version 1)
Quarter: 2015Q3

REPORT INFORMATION
  Report Type: Spontaneous
  Country: US (occurrence: US)
  Receive Date: 20150821
  Receipt Date: 20150821
  Transmission Date: 20151125
  Serious: No
  Sender: FDA-Public Use
  Company Number: US-ELI_LILLY_AND_COMPANY-US201305007184

PATIENT
  Age: 45 Year
  Sex: Female

DRUGS (7)
  1. HUMULIN R [Suspect]
     Active Substance: INSULIN HUMAN
     Dosage: 130 U, EACH MORNING
  2. OPTIFAST VLCD [Concomitant]
     Dosage: UNK, QD
  3. HUMULIN R [Suspect]
     Active Substance: INSULIN HUMAN
     Dosage: 140 U, EACH EVENING
  4. HUMULIN R [Suspect]
     Active Substance: INSULIN HUMAN
     Indication: TYPE 2 DIABETES MELLITUS
     Dosage: 260 U, EACH MORNING
  5. HUMULIN R [Suspect]
     Active Substance: INSULIN HUMAN
     Dosage: 70 U, EACH EVENING
  6. HUMULIN R [Suspect]
     Active Substance: INSULIN HUMAN
     Dosage: 60 U, EACH MORNING
  7. HUMULIN R [Suspect]
     Active Substance: INSULIN HUMAN
     Dosage: 30 U, EACH EVENING

REACTIONS (2)
  - Hypoglycaemia [Not Recovered/Not Resolved]
  - Blood glucose increased [Unknown]
